APPROVED DRUG PRODUCT: ATORVASTATIN CALCIUM
Active Ingredient: ATORVASTATIN CALCIUM
Strength: EQ 40MG BASE
Dosage Form/Route: TABLET;ORAL
Application: A077575 | Product #003 | TE Code: AB
Applicant: CHARTWELL RX SCIENCES LLC
Approved: May 29, 2012 | RLD: No | RS: No | Type: RX